FAERS Safety Report 15154934 (Version 1)
Quarter: 2018Q3

REPORT INFORMATION
  Report Type: Spontaneous
  Country: US (occurrence: US)
  Receive Date: 20180717
  Receipt Date: 20180717
  Transmission Date: 20181010
  Serious: Yes (Other)
  Sender: FDA-Public Use
  Company Number: US-SA-2018SA184660

PATIENT
  Age: 77 Year
  Sex: Male

DRUGS (4)
  1. TAXOTERE [Suspect]
     Active Substance: DOCETAXEL
     Indication: PROSTATIC SPECIFIC ANTIGEN INCREASED
     Dosage: UNK UNK, UNK
     Route: 042
  2. XTANDI [Suspect]
     Active Substance: ENZALUTAMIDE
     Indication: PROSTATE CANCER
     Dosage: 160 MG, QD
     Route: 048
     Dates: start: 20171014
  3. METFORMIN [Concomitant]
     Active Substance: METFORMIN HYDROCHLORIDE
  4. SIMVASTATIN. [Concomitant]
     Active Substance: SIMVASTATIN

REACTIONS (9)
  - Hot flush [Not Recovered/Not Resolved]
  - Malignant neoplasm progression [Unknown]
  - Constipation [Recovered/Resolved]
  - Pruritus [Unknown]
  - Nipple pain [Unknown]
  - Prostatic specific antigen increased [Recovering/Resolving]
  - Treatment noncompliance [Unknown]
  - Fatigue [Not Recovered/Not Resolved]
  - Hypertension [Recovered/Resolved]
